FAERS Safety Report 8465837-0 (Version None)
Quarter: 2012Q2

REPORT INFORMATION
  Report Type: 
  Country: None (occurrence: None)
  Receive Date: 20120626
  Receipt Date: 20120612
  Transmission Date: 20120825
  Serious: Yes (Death)
  Sender: FDA-Public Use
  Company Number: US-CELGENEUS-163-21660-12033660

PATIENT
  Sex: Female

DRUGS (18)
  1. LEVAQUIN [Concomitant]
     Dosage: 500 MILLIGRAM
     Route: 065
     Dates: start: 20111128
  2. SPIRIVA WITH HAND HALER [Concomitant]
     Route: 065
     Dates: start: 20070614
  3. ZOFRAN [Concomitant]
     Dosage: 16 MILLIGRAM
     Route: 065
     Dates: start: 20070614
  4. LASIX [Concomitant]
     Dosage: 20 MILLIGRAM
     Route: 065
     Dates: start: 20120113
  5. OXYGEN [Concomitant]
     Route: 065
     Dates: start: 20070614
  6. COMBIVENT [Concomitant]
     Route: 065
     Dates: start: 20070614
  7. TUSSIONEX [Concomitant]
     Dosage: 5 MILLILITER
     Route: 065
     Dates: start: 20110802
  8. ABRAXANE [Suspect]
     Route: 065
     Dates: start: 20120309
  9. TARCEVA [Concomitant]
     Dosage: 100 MILLIGRAM
     Route: 065
     Dates: start: 20070614
  10. ADVAIR DISKUS 100/50 [Concomitant]
     Dosage: 250-50
     Route: 065
     Dates: start: 20070614
  11. COMPAZINE [Concomitant]
     Dosage: 10 MILLIGRAM
     Route: 065
     Dates: start: 20070614
  12. FOLIC ACID [Concomitant]
     Dosage: 1 MILLIGRAM
     Route: 065
     Dates: start: 20070614
  13. PLAVIX [Concomitant]
     Dosage: 75 MILLIGRAM
     Route: 065
     Dates: start: 20070614
  14. VITAMIN E [Concomitant]
     Route: 065
     Dates: start: 20070614
  15. ALBUTEROL SULFATE [Concomitant]
     Route: 055
     Dates: start: 20070614
  16. POTASSIUM CHLORIDE [Concomitant]
     Dosage: 20 MILLIEQUIVALENTS
     Route: 065
     Dates: start: 20120113
  17. PREMARIN [Concomitant]
     Route: 065
     Dates: start: 20070614
  18. XANAX [Concomitant]
     Dosage: 1.5 MILLIGRAM
     Route: 065
     Dates: start: 20070614

REACTIONS (1)
  - LUNG NEOPLASM MALIGNANT [None]
